FAERS Safety Report 19397204 (Version 1)
Quarter: 2021Q2

REPORT INFORMATION
  Report Type: Spontaneous
  Country: US (occurrence: US)
  Receive Date: 20210609
  Receipt Date: 20210609
  Transmission Date: 20210717
  Serious: No
  Sender: FDA-Public Use
  Company Number: US-009507513-2106USA001755

PATIENT
  Sex: Male

DRUGS (3)
  1. VERQUVO [Suspect]
     Active Substance: VERICIGUAT
     Indication: CARDIAC FAILURE
     Dosage: 2.5 MILLIGRAM FOR 2 WEEKS
     Route: 048
  2. VERQUVO [Suspect]
     Active Substance: VERICIGUAT
     Dosage: 5 MILLIGRAM
  3. VERQUVO [Suspect]
     Active Substance: VERICIGUAT
     Dosage: 7.5 MILLIGRAM

REACTIONS (2)
  - Asthenia [Recovered/Resolved]
  - Malaise [Recovered/Resolved]
